FAERS Safety Report 24303855 (Version 5)
Quarter: 2024Q4

REPORT INFORMATION
  Report Type: Spontaneous
  Country: US (occurrence: US)
  Receive Date: 20240910
  Receipt Date: 20241122
  Transmission Date: 20250115
  Serious: No
  Sender: PFIZER
  Company Number: US-PFIZER INC-PV202400118318

PATIENT
  Age: 44 Year
  Sex: Female

DRUGS (3)
  1. TUKYSA [Suspect]
     Active Substance: TUCATINIB
     Dosage: 2 TABLETS TWICE DAILY
  2. XELODA [Concomitant]
     Active Substance: CAPECITABINE
     Dosage: UNK
  3. VISCUM ALBUM FRUITING TOP [Concomitant]
     Active Substance: VISCUM ALBUM FRUITING TOP
     Indication: Abdominal discomfort
     Dosage: UNK

REACTIONS (4)
  - Neoplasm progression [Unknown]
  - Diarrhoea [Recovering/Resolving]
  - Joint injury [Unknown]
  - Back injury [Unknown]
